FAERS Safety Report 11157543 (Version 1)
Quarter: 2015Q2

REPORT INFORMATION
  Report Type: Spontaneous
  Country: US (occurrence: US)
  Receive Date: 20150603
  Receipt Date: 20150603
  Transmission Date: 20150821
  Serious: Yes (Hospitalization)
  Sender: FDA-Public Use
  Company Number: US-BEH-2015050922

PATIENT
  Sex: Female
  Weight: 60 kg

DRUGS (33)
  1. DEXTROSE. [Concomitant]
     Active Substance: DEXTROSE
     Dosage: 5 % UD
     Route: 042
  2. MORPHINE SULFATE ER [Concomitant]
     Active Substance: MORPHINE SULFATE
     Dosage: 30 MG CPMP 24 HR; 1 TAB QID
     Route: 048
  3. MIRALAX PACKET [Concomitant]
     Dosage: 1 PKT PRN
     Route: 048
  4. DANTRIUM 100 MG [Concomitant]
     Indication: MUSCLE SPASMS
     Route: 048
  5. IBUPROFEN. [Concomitant]
     Active Substance: IBUPROFEN
     Dosage: 1 TAB PRN
     Route: 048
  6. ATROVENT INHALER [Concomitant]
     Dosage: 2 PUFFS PRN
  7. COLACE-T- 100 MG [Concomitant]
     Dosage: 1 CAP BID
     Route: 048
  8. DIPHENHYDRAMINE [Concomitant]
     Active Substance: DIPHENHYDRAMINE
     Dosage: UD
     Route: 048
  9. EPIPEN [Concomitant]
     Active Substance: EPINEPHRINE
     Indication: ANAPHYLACTIC REACTION
     Dosage: 0.3 MG PRN ANA
     Route: 042
  10. ENOXAPARIN 30MG/0.3 ML SYRINGE [Concomitant]
     Dosage: 1 INJ BID
     Route: 058
  11. PRIVIGEN [Suspect]
     Active Substance: HUMAN IMMUNOGLOBULIN G
     Indication: STIFF PERSON SYNDROME
     Dosage: 5 G VIALS
     Route: 042
  12. OXYGEN. [Concomitant]
     Active Substance: OXYGEN
     Indication: ASTHMA
     Dosage: 2 L HSP
     Route: 045
  13. CELEXA [Concomitant]
     Active Substance: CITALOPRAM HYDROBROMIDE
     Dosage: 1 TAB QD
     Route: 048
  14. PRIVIGEN [Suspect]
     Active Substance: HUMAN IMMUNOGLOBULIN G
     Dosage: 20 G VIALS
     Route: 042
  15. ACETAMINOPHEN. [Concomitant]
     Active Substance: ACETAMINOPHEN
     Dosage: UD
     Route: 048
  16. ADDERALL 30 MG [Concomitant]
     Route: 048
  17. NASACORT AQ NASAL SPRAY [Concomitant]
     Dosage: 2 SPRAYS BID
  18. POTASSIUM CL ER 20 MEQ [Concomitant]
     Dosage: 1 TAB, BID. 40 MEQ
     Route: 048
  19. BACLOFEN POWDER [Concomitant]
     Indication: MUSCLE SPASMS
     Dosage: 1 DOSE CONT
  20. CALCIUM 500 MG [Concomitant]
     Dosage: 3 TABS QD
     Route: 048
  21. DIPHENHYDRAMINE HYDROCHLORIDE. [Concomitant]
     Active Substance: DIPHENHYDRAMINE HYDROCHLORIDE
     Indication: ANAPHYLACTIC REACTION
     Dosage: 50 MG/ML PRN ANA
     Route: 042
  22. ADDERALL [Concomitant]
     Active Substance: AMPHETAMINE ASPARTATE\AMPHETAMINE SULFATE\DEXTROAMPHETAMINE SACCHARATE\DEXTROAMPHETAMINE SULFATE
     Route: 048
  23. NEURONTIN [Concomitant]
     Active Substance: GABAPENTIN
     Route: 048
  24. PRIVIGEN [Suspect]
     Active Substance: HUMAN IMMUNOGLOBULIN G
     Route: 042
  25. PRIVIGEN [Suspect]
     Active Substance: HUMAN IMMUNOGLOBULIN G
     Route: 042
  26. PRILOSEC DR 10 MG [Concomitant]
     Dosage: 3 CAPS DAILY
     Route: 048
  27. ALBUTEROL 0.83 MG/ML SOLUTION [Concomitant]
     Dosage: 1 VIAL PRN, NEBU
     Route: 045
  28. DEPO-PROVERA 150MG/ML SYRN [Concomitant]
     Dosage: 1 INJ  Q3M
     Route: 030
  29. DIAZEPAM. [Concomitant]
     Active Substance: DIAZEPAM
     Dosage: 1 TAB AS NECESSARY
     Route: 048
  30. SODIUM CHLORIDE. [Concomitant]
     Active Substance: SODIUM CHLORIDE
     Dosage: 0.9% FLUSH
     Route: 042
  31. SOLU-MEDROL [Concomitant]
     Active Substance: METHYLPREDNISOLONE SODIUM SUCCINATE
     Indication: PREMEDICATION
     Dosage: SOLU-MEDROL 125MG/2ML VIAL
     Route: 042
  32. BOTOX 100 UNITS VIAL [Concomitant]
     Indication: MUSCLE SPASMS
     Dosage: 1 DOSE Q3M
     Route: 058
  33. FIORICET-COD 30-50--325-40 [Concomitant]
     Dosage: 1 CAP PRN
     Route: 048

REACTIONS (2)
  - Skin infection [Unknown]
  - Staphylococcal infection [Unknown]
